FAERS Safety Report 10028436 (Version 1)
Quarter: 2014Q1

REPORT INFORMATION
  Report Type: Spontaneous
  Country: US (occurrence: None)
  Receive Date: 20140320
  Receipt Date: 20140320
  Transmission Date: 20141002
  Serious: Yes (Other)
  Sender: FDA-Public Use
  Company Number: ABR_01530_2014

PATIENT
  Age: 57 Year
  Sex: Male

DRUGS (10)
  1. LAMOTRIGINE [Suspect]
     Indication: AFFECTIVE DISORDER
  2. CITALOPRAM [Suspect]
     Indication: AFFECTIVE DISORDER
  3. TRAZODONE [Suspect]
     Indication: AFFECTIVE DISORDER
  4. BUPROPION [Suspect]
     Indication: AFFECTIVE DISORDER
     Dosage: 1 WEEK UNTIL NOT CONTINUING
  5. OMEPRAZOLE [Concomitant]
  6. DOXYCYCLINE [Concomitant]
  7. ALBUTEROL [Concomitant]
  8. IBUPROFEN [Concomitant]
  9. ACETAMINOPHEN [Concomitant]
  10. GUAIFENESIN [Concomitant]

REACTIONS (1)
  - Dystonia [None]
